FAERS Safety Report 10659089 (Version 1)
Quarter: 2014Q4

REPORT INFORMATION
  Report Type: Spontaneous
  Country: US (occurrence: US)
  Receive Date: 20141217
  Receipt Date: 20141217
  Transmission Date: 20150529
  Serious: No
  Sender: FDA-Public Use
  Company Number: US-GLAXOSMITHKLINE-A1074781A

PATIENT

DRUGS (6)
  1. VITAMIN D [Concomitant]
     Active Substance: CHOLECALCIFEROL
  2. CADUET [Concomitant]
     Active Substance: AMLODIPINE BESYLATE\ATORVASTATIN CALCIUM
  3. MEGACE [Concomitant]
     Active Substance: MEGESTROL ACETATE
  4. VOTRIENT [Suspect]
     Active Substance: PAZOPANIB HYDROCHLORIDE
     Indication: HEPATIC CANCER
     Route: 048
     Dates: start: 20140305
  5. VITAMIN C [Concomitant]
     Active Substance: ASCORBIC ACID
  6. DIOVAN [Concomitant]
     Active Substance: VALSARTAN

REACTIONS (1)
  - Abdominal pain upper [Not Recovered/Not Resolved]
